FAERS Safety Report 17163688 (Version 3)
Quarter: 2019Q4

REPORT INFORMATION
  Report Type: Spontaneous
  Country: FR (occurrence: FR)
  Receive Date: 20191217
  Receipt Date: 20191231
  Transmission Date: 20200122
  Serious: Yes (Other)
  Sender: FDA-Public Use
  Company Number: FR-TEVA-2019-FR-1153925

PATIENT
  Sex: Female

DRUGS (2)
  1. VERAPAMIL TEVA 40 MG [Suspect]
     Active Substance: VERAPAMIL HYDROCHLORIDE
     Dosage: 2 DOSAGE FORMS DAILY;
     Route: 065
  2. VERAPAMIL TEVA 40 MG [Suspect]
     Active Substance: VERAPAMIL HYDROCHLORIDE
     Indication: MUSCLE SPASMS
     Dosage: 1 DOSAGE FORMS DAILY;
     Route: 065

REACTIONS (20)
  - Bone marrow leukaemic cell infiltration [Unknown]
  - Nausea [Unknown]
  - Gallbladder disorder [Unknown]
  - Hepatic pain [Unknown]
  - Drug effective for unapproved indication [Unknown]
  - Nervousness [Unknown]
  - Hyperproteinaemia [Unknown]
  - Noninfective gingivitis [Unknown]
  - Abdominal pain [Unknown]
  - Renal cyst [Unknown]
  - Intentional product misuse [Unknown]
  - Nephrolithiasis [Unknown]
  - Product use in unapproved indication [Unknown]
  - Heart rate decreased [Unknown]
  - Decreased appetite [Unknown]
  - Myalgia [Unknown]
  - Tremor [Not Recovered/Not Resolved]
  - Gingival discomfort [Unknown]
  - Gingival pain [Unknown]
  - Headache [Unknown]

NARRATIVE: CASE EVENT DATE: 2008
